FAERS Safety Report 15565172 (Version 3)
Quarter: 2018Q4

REPORT INFORMATION
  Report Type: Spontaneous
  Country: US (occurrence: US)
  Receive Date: 20181030
  Receipt Date: 20181205
  Transmission Date: 20190205
  Serious: No
  Sender: FDA-Public Use
  Company Number: US-SA-2018SA295220

PATIENT
  Sex: Male

DRUGS (1)
  1. ADMELOG [Suspect]
     Active Substance: INSULIN LISPRO
     Indication: DIABETES MELLITUS
     Dosage: 4 TIMES DAILY
     Route: 065

REACTIONS (5)
  - Visual impairment [Unknown]
  - Circumstance or information capable of leading to medication error [Unknown]
  - Blood glucose increased [Unknown]
  - Device issue [Unknown]
  - Syringe issue [Unknown]
